FAERS Safety Report 12877536 (Version 1)
Quarter: 2016Q4

REPORT INFORMATION
  Report Type: Spontaneous
  Country: US (occurrence: US)
  Receive Date: 20161024
  Receipt Date: 20161024
  Transmission Date: 20170207
  Serious: Yes (Other)
  Sender: FDA-Public Use
  Company Number: US-STANDARD HOMEOPATHIC COMPANY-1058684

PATIENT
  Age: 14 Month
  Sex: Female
  Weight: 10.91 kg

DRUGS (2)
  1. BABY TEETHING (HYLAND HOMEOPATHIC) [Suspect]
     Active Substance: HOMEOPATHICS
     Indication: TEETHING
     Route: 048
     Dates: start: 201603
  2. HYLAND^S BABY TINY COLD TABLETS [Suspect]
     Active Substance: HOMEOPATHICS
     Route: 048

REACTIONS (2)
  - Seizure [None]
  - Product use issue [None]

NARRATIVE: CASE EVENT DATE: 201606
